FAERS Safety Report 9729055 (Version 1)
Quarter: 2013Q4

REPORT INFORMATION
  Report Type: Spontaneous
  Country: JP (occurrence: JP)
  Receive Date: 20131204
  Receipt Date: 20131204
  Transmission Date: 20140711
  Serious: Yes (Other)
  Sender: FDA-Public Use
  Company Number: PHHY2013JP138220

PATIENT
  Age: 74 Year
  Sex: Male

DRUGS (1)
  1. CEFEPIME [Suspect]
     Indication: POST PROCEDURAL BILE LEAK
     Dosage: 4 G, DAILY
     Route: 042

REACTIONS (3)
  - Delirium [Unknown]
  - Altered state of consciousness [Recovered/Resolved]
  - Depressed level of consciousness [Recovered/Resolved]
